FAERS Safety Report 10401849 (Version 1)
Quarter: 2014Q3

REPORT INFORMATION
  Report Type: Spontaneous
  Country: US (occurrence: None)
  Receive Date: 20140820
  Receipt Date: 20140820
  Transmission Date: 20150326
  Serious: No
  Sender: FDA-Public Use
  Company Number: None

PATIENT
  Sex: Male

DRUGS (1)
  1. H.P. ACTHAR [Suspect]
     Active Substance: CORTICOTROPIN
     Indication: NEPHROTIC SYNDROME
     Dosage: 40 UNIT
     Route: 058
     Dates: start: 20140528, end: 20140801

REACTIONS (5)
  - Swelling [None]
  - Visual acuity reduced [None]
  - Headache [None]
  - Deafness [None]
  - Migraine [None]
